FAERS Safety Report 13559539 (Version 1)
Quarter: 2017Q2

REPORT INFORMATION
  Report Type: Spontaneous
  Country: US (occurrence: US)
  Receive Date: 20170518
  Receipt Date: 20170518
  Transmission Date: 20170830
  Serious: Yes (Other)
  Sender: FDA-Public Use
  Company Number: US-APOTEX-2017AP012074

PATIENT
  Age: 28 Year
  Sex: Male

DRUGS (4)
  1. CIPROFLOXACIN HYDROCHLORIDE. [Suspect]
     Active Substance: CIPROFLOXACIN HYDROCHLORIDE
     Indication: PSEUDOMONAS INFECTION
     Route: 065
  2. ERYTHROMYCIN. [Suspect]
     Active Substance: ERYTHROMYCIN
     Indication: PSEUDOMONAS INFECTION
     Route: 065
  3. AZTREONAM. [Suspect]
     Active Substance: AZTREONAM
     Indication: PSEUDOMONAS INFECTION
     Route: 065
  4. CEFTIZOXIME [Suspect]
     Active Substance: CEFTIZOXIME
     Indication: PSEUDOMONAS INFECTION
     Route: 065

REACTIONS (2)
  - Ototoxicity [Unknown]
  - Ototoxicity [Unknown]

NARRATIVE: CASE EVENT DATE: 201704
